FAERS Safety Report 19801561 (Version 1)
Quarter: 2021Q3

REPORT INFORMATION
  Report Type: Spontaneous
  Country: CN (occurrence: CN)
  Receive Date: 20210908
  Receipt Date: 20210908
  Transmission Date: 20211014
  Serious: Yes (Hospitalization)
  Sender: FDA-Public Use
  Company Number: CN-BAXTER-2021BAX027541

PATIENT
  Age: 34 Year
  Sex: Female

DRUGS (9)
  1. ENDOXAN [Suspect]
     Active Substance: CYCLOPHOSPHAMIDE
     Route: 041
     Dates: start: 20210816, end: 20210816
  2. EPIRUBICIN HYDROCHLORIDE. [Suspect]
     Active Substance: EPIRUBICIN HYDROCHLORIDE
     Route: 041
     Dates: start: 20210816, end: 20210816
  3. EPIRUBICIN HYDROCHLORIDE. [Suspect]
     Active Substance: EPIRUBICIN HYDROCHLORIDE
     Indication: BREAST CANCER FEMALE
     Route: 041
     Dates: start: 20210809, end: 20210809
  4. EPIRUBICIN HYDROCHLORIDE. [Suspect]
     Active Substance: EPIRUBICIN HYDROCHLORIDE
     Dosage: DOSE RE?INTRODUCED
     Route: 041
  5. ENDOXAN [Suspect]
     Active Substance: CYCLOPHOSPHAMIDE
     Indication: BREAST CANCER FEMALE
     Route: 041
     Dates: start: 20210809, end: 20210809
  6. PACLITAXEL. [Suspect]
     Active Substance: PACLITAXEL
     Dosage: DOSE RE?INTRODUCED
     Route: 041
  7. PACLITAXEL. [Suspect]
     Active Substance: PACLITAXEL
     Route: 041
     Dates: start: 20210816, end: 20210816
  8. ENDOXAN [Suspect]
     Active Substance: CYCLOPHOSPHAMIDE
     Dosage: DOSE RE?INTRODUCED
     Route: 041
  9. PACLITAXEL. [Suspect]
     Active Substance: PACLITAXEL
     Indication: BREAST CANCER FEMALE
     Route: 041
     Dates: start: 20210809, end: 20210809

REACTIONS (7)
  - Blood creatine phosphokinase decreased [Recovering/Resolving]
  - Nausea [Recovering/Resolving]
  - Neutrophil count decreased [Recovering/Resolving]
  - Transaminases increased [Recovering/Resolving]
  - Hepatic function abnormal [Recovering/Resolving]
  - Decreased appetite [Recovering/Resolving]
  - Leukopenia [Recovering/Resolving]

NARRATIVE: CASE EVENT DATE: 20210810
